FAERS Safety Report 24981316 (Version 2)
Quarter: 2025Q1

REPORT INFORMATION
  Report Type: Spontaneous
  Country: ES (occurrence: ES)
  Receive Date: 20250218
  Receipt Date: 20250326
  Transmission Date: 20250408
  Serious: Yes (Death, Hospitalization)
  Sender: AMGEN
  Company Number: ES-AMGEN-ESPSP2025030313

PATIENT
  Age: 93 Year
  Sex: Male

DRUGS (1)
  1. PROLIA [Suspect]
     Active Substance: DENOSUMAB
     Indication: Product used for unknown indication
     Route: 065

REACTIONS (3)
  - Death [Fatal]
  - Hip fracture [Unknown]
  - Hypocalcaemia [Unknown]
